FAERS Safety Report 7441781-2 (Version None)
Quarter: 2011Q2

REPORT INFORMATION
  Report Type: 
  Country: None (occurrence: None)
  Receive Date: 20110426
  Receipt Date: 20110426
  Transmission Date: 20111010
  Serious: Yes (Other)
  Sender: FDA-Public Use
  Company Number: None

PATIENT
  Age: 70 Year
  Sex: Male
  Weight: 69.5 kg

DRUGS (1)
  1. IMIQUIMOB [Suspect]
     Indication: ACTINIC KERATOSIS
     Dosage: .25G ONCE DAILY
     Dates: start: 20110403, end: 20110417

REACTIONS (4)
  - INFLUENZA LIKE ILLNESS [None]
  - FATIGUE [None]
  - BURNING SENSATION [None]
  - MYALGIA [None]
